FAERS Safety Report 14103241 (Version 1)
Quarter: 2017Q4

REPORT INFORMATION
  Report Type: Spontaneous
  Country: GB (occurrence: GB)
  Receive Date: 20171018
  Receipt Date: 20171018
  Transmission Date: 20180321
  Serious: Yes (Hospitalization)
  Sender: FDA-Public Use
  Company Number: GB-PFIZER INC-2017440543

PATIENT
  Age: 85 Year
  Sex: Female
  Weight: 50.8 kg

DRUGS (6)
  1. VENLAFAXINE HCL [Suspect]
     Active Substance: VENLAFAXINE HYDROCHLORIDE
     Indication: BIPOLAR DISORDER
     Dosage: 300 MG, 1X/DAY
     Dates: start: 2014
  2. EPILIM [Suspect]
     Active Substance: VALPROATE SODIUM
     Dosage: 700 MG, UNK
     Dates: start: 2014
  3. MIRTAZAPINE. [Suspect]
     Active Substance: MIRTAZAPINE
     Indication: BIPOLAR DISORDER
     Dosage: 45 MG, 1X/DAY
     Dates: start: 2014
  4. OLANZAPINE. [Suspect]
     Active Substance: OLANZAPINE
     Dosage: 15 MG, UNK
     Dates: start: 2014
  5. LEVOTHYROXINE. [Suspect]
     Active Substance: LEVOTHYROXINE
     Dosage: 50 UG, UNK
     Dates: start: 2014
  6. FUROSEMIDE. [Suspect]
     Active Substance: FUROSEMIDE
     Dosage: 80 MG, UNK
     Dates: start: 2014

REACTIONS (11)
  - Tremor [Not Recovered/Not Resolved]
  - Soft tissue injury [Unknown]
  - Glassy eyes [Not Recovered/Not Resolved]
  - Staring [Not Recovered/Not Resolved]
  - Lower respiratory tract infection [Recovered/Resolved]
  - Product use in unapproved indication [Not Recovered/Not Resolved]
  - Fall [Not Recovered/Not Resolved]
  - Peripheral swelling [Not Recovered/Not Resolved]
  - Drug ineffective [Unknown]
  - Overdose [Not Recovered/Not Resolved]
  - Urinary tract infection [Recovered/Resolved]

NARRATIVE: CASE EVENT DATE: 2014
